FAERS Safety Report 9278299 (Version 1)
Quarter: 2013Q2

REPORT INFORMATION
  Report Type: Spontaneous
  Country: FR (occurrence: FR)
  Receive Date: 20130508
  Receipt Date: 20130508
  Transmission Date: 20140414
  Serious: Yes (Hospitalization, Other)
  Sender: FDA-Public Use
  Company Number: FR-PFIZER INC-2013141967

PATIENT
  Age: 69 Year
  Sex: Male

DRUGS (3)
  1. CAMPTO [Suspect]
     Indication: COLON CANCER
     Dosage: UNK
     Dates: start: 20121113, end: 20130313
  2. FLUOROURACIL [Suspect]
     Indication: COLON CANCER
     Dosage: UNK
     Dates: start: 20121113, end: 20130313
  3. AVASTIN [Suspect]
     Indication: COLON CANCER
     Dosage: 5 MG/KG, UNK
     Route: 042
     Dates: start: 20121113, end: 20130313

REACTIONS (2)
  - Transient ischaemic attack [Recovered/Resolved]
  - Amaurosis [Recovered/Resolved]
